FAERS Safety Report 19359513 (Version 1)
Quarter: 2021Q2

REPORT INFORMATION
  Report Type: Spontaneous
  Country: US (occurrence: US)
  Receive Date: 20210602
  Receipt Date: 20210602
  Transmission Date: 20210717
  Serious: No
  Sender: FDA-Public Use
  Company Number: US-PFIZER INC-2021581512

PATIENT
  Age: 48 Year
  Sex: Female
  Weight: 70.3 kg

DRUGS (7)
  1. MULTIVITAMINS [VITAMINS NOS] [Concomitant]
     Active Substance: VITAMINS
  2. IBRANCE [Suspect]
     Active Substance: PALBOCICLIB
     Indication: BREAST CANCER
     Dosage: 125 MG, CYCLIC (DAILY FOR 21 DAYS)
     Route: 048
     Dates: start: 20210211
  3. AMBIEN [Concomitant]
     Active Substance: ZOLPIDEM TARTRATE
  4. LETROZOLE. [Concomitant]
     Active Substance: LETROZOLE
  5. ZYRTEC [Concomitant]
     Active Substance: CETIRIZINE HYDROCHLORIDE
  6. HYDROCODONE/ACETAMINOPHEN [Concomitant]
     Active Substance: ACETAMINOPHEN\HYDROCODONE
  7. XANAX [Concomitant]
     Active Substance: ALPRAZOLAM

REACTIONS (7)
  - Rash [Recovered/Resolved]
  - Skin exfoliation [Unknown]
  - Joint swelling [Unknown]
  - Gingival swelling [Unknown]
  - Peripheral swelling [Unknown]
  - Skin discolouration [Unknown]
  - Gingival pain [Unknown]

NARRATIVE: CASE EVENT DATE: 2021
